FAERS Safety Report 4571470-3 (Version None)
Quarter: 2005Q1

REPORT INFORMATION
  Report Type: 
  Country: None (occurrence: None)
  Receive Date: 20050207
  Receipt Date: 20050125
  Transmission Date: 20050727
  Serious: Yes (Death)
  Sender: FDA-Public Use
  Company Number: JP-NOVOPROD-241903

PATIENT
  Sex: Female

DRUGS (1)
  1. NOVORAPID CHU [Suspect]
     Indication: DIABETES MELLITUS
     Dates: start: 20030722, end: 20040731

REACTIONS (1)
  - MEGACOLON [None]
